FAERS Safety Report 10458223 (Version 1)
Quarter: 2014Q3

REPORT INFORMATION
  Report Type: Spontaneous
  Country: GB (occurrence: GB)
  Receive Date: 20140917
  Receipt Date: 20140917
  Transmission Date: 20150326
  Serious: Yes (Other)
  Sender: FDA-Public Use
  Company Number: GB-AUROBINDO-AUR-APL-2014-09696

PATIENT
  Age: 88 Year

DRUGS (1)
  1. GABAPENTIN 300MG [Suspect]
     Active Substance: GABAPENTIN
     Indication: NEURALGIA
     Dosage: 300 MG, 3 TIMES A DAY
     Route: 048

REACTIONS (2)
  - Glomerular filtration rate increased [Recovered/Resolved]
  - Renal failure acute [Recovered/Resolved]
